FAERS Safety Report 13009878 (Version 3)
Quarter: 2017Q4

REPORT INFORMATION
  Report Type: Spontaneous
  Country: IN (occurrence: IN)
  Receive Date: 20161208
  Receipt Date: 20171024
  Transmission Date: 20180320
  Serious: Yes (Other)
  Sender: FDA-Public Use
  Company Number: IN-PFIZER INC-2016570881

PATIENT
  Sex: Female
  Weight: .7 kg

DRUGS (1)
  1. SILDENAFIL CITRATE. [Suspect]
     Active Substance: SILDENAFIL CITRATE
     Indication: PULMONARY HYPERTENSION
     Dosage: 0.8 MG/KG, DAILY IN THREE DIVIDED DOSES
     Route: 048

REACTIONS (2)
  - Disease recurrence [Recovering/Resolving]
  - Retinal neovascularisation [Recovering/Resolving]
